FAERS Safety Report 21122773 (Version 1)
Quarter: 2022Q3

REPORT INFORMATION
  Report Type: Spontaneous
  Country: JP (occurrence: JP)
  Receive Date: 20220723
  Receipt Date: 20220723
  Transmission Date: 20221027
  Serious: Yes (Other)
  Sender: FDA-Public Use
  Company Number: JP-Accord-269959

PATIENT
  Age: 79 Year
  Sex: Female

DRUGS (1)
  1. CLONAZEPAM [Suspect]
     Active Substance: CLONAZEPAM
     Indication: Essential tremor
     Dosage: 1.5 MG AT BEDTIME

REACTIONS (1)
  - Dementia with Lewy bodies [Recovered/Resolved]
